FAERS Safety Report 19651312 (Version 1)
Quarter: 2021Q3

REPORT INFORMATION
  Report Type: Report from Study
  Country: IT (occurrence: IT)
  Receive Date: 20210803
  Receipt Date: 20210803
  Transmission Date: 20211014
  Serious: Yes (Other)
  Sender: FDA-Public Use
  Company Number: IT-TEVA-2021-IT-1938604

PATIENT
  Age: 24 Year
  Sex: Female

DRUGS (3)
  1. ENALAPRIL [Suspect]
     Active Substance: ENALAPRIL
     Indication: DRUG ABUSE
     Dosage: 7DOSAGEFORM:ABUSE / MISUSE
     Route: 048
     Dates: start: 20210512, end: 20210512
  2. METHOCARBAMOL. [Suspect]
     Active Substance: METHOCARBAMOL
     Indication: DRUG ABUSE
     Dosage: 19DOSAGEFORM:ABUSE / MISUSE
     Route: 048
     Dates: start: 20210512, end: 20210512
  3. LORATADINE. [Suspect]
     Active Substance: LORATADINE
     Indication: DRUG ABUSE
     Dosage: 1DOSAGEFORM:ABUSE / MISUSE
     Route: 048
     Dates: start: 20210512, end: 20210512

REACTIONS (2)
  - Sopor [Recovering/Resolving]
  - Drug abuse [Recovering/Resolving]

NARRATIVE: CASE EVENT DATE: 20210512
